FAERS Safety Report 8837707 (Version 2)
Quarter: 2014Q3

REPORT INFORMATION
  Report Type: Report from Study
  Country: US (occurrence: US)
  Receive Date: 20121012
  Receipt Date: 20140911
  Transmission Date: 20150326
  Serious: Yes (Other)
  Sender: FDA-Public Use
  Company Number: US-ROCHE-1132090

PATIENT
  Sex: Male

DRUGS (9)
  1. RITUXIMAB [Suspect]
     Active Substance: RITUXIMAB
     Indication: DIFFUSE LARGE B-CELL LYMPHOMA STAGE III
     Route: 042
     Dates: start: 20010925
  2. CHOPHYTOL [Concomitant]
  3. ALLOPURINOL. [Concomitant]
     Active Substance: ALLOPURINOL
  4. ZOFRAN [Concomitant]
     Active Substance: ONDANSETRON HYDROCHLORIDE
     Route: 042
  5. TYLENOL [Concomitant]
     Active Substance: ACETAMINOPHEN
     Dosage: TYLENOL GRAINS 10
     Route: 065
  6. POTASSIUM CHLORIDE. [Concomitant]
     Active Substance: POTASSIUM CHLORIDE
     Route: 042
  7. BENADRYL [Concomitant]
     Active Substance: DIPHENHYDRAMINE HYDROCHLORIDE
     Route: 042
  8. DECADRON [Concomitant]
     Active Substance: DEXAMETHASONE
     Route: 065
  9. NORMAL SALINE [Concomitant]
     Active Substance: SODIUM CHLORIDE
     Route: 042

REACTIONS (11)
  - Dry mouth [Unknown]
  - Haemolysis [Unknown]
  - Haematocrit decreased [Unknown]
  - White blood cell count increased [Unknown]
  - Somnolence [Unknown]
  - Lymphoedema [Unknown]
  - Scrotal oedema [Unknown]
  - Platelet count increased [Unknown]
  - Oedema peripheral [Unknown]
  - Haemoglobin decreased [Unknown]
  - Faeces discoloured [Unknown]
